FAERS Safety Report 16245585 (Version 1)
Quarter: 2019Q2

REPORT INFORMATION
  Report Type: Spontaneous
  Country: DE (occurrence: DE)
  Receive Date: 20190426
  Receipt Date: 20190426
  Transmission Date: 20190711
  Serious: Yes (Other)
  Sender: FDA-Public Use
  Company Number: DE-ARRAY-2019-05489

PATIENT

DRUGS (5)
  1. BRAFTOVI [Suspect]
     Active Substance: ENCORAFENIB
     Dosage: 3 DF PER DAY
     Route: 048
     Dates: start: 201902, end: 20190324
  2. CALCIUM + D3 600/400MG [Concomitant]
     Indication: PRODUCT USED FOR UNKNOWN INDICATION
     Route: 048
     Dates: start: 201902
  3. MEKTOVI [Suspect]
     Active Substance: BINIMETINIB
     Dosage: 15 MG, EVERY 12 H
     Route: 048
     Dates: start: 201902, end: 20190324
  4. PREDNISOLON 10MG [Concomitant]
     Indication: PRODUCT USED FOR UNKNOWN INDICATION
     Route: 048
     Dates: start: 201902
  5. NATRIUMCHLORID 0.9% [Concomitant]
     Indication: FLUID IMBALANCE
     Dosage: 1-2 LITER
     Route: 042
     Dates: start: 20190324

REACTIONS (4)
  - Pain in extremity [Unknown]
  - Off label use [Unknown]
  - Rhabdomyolysis [Not Recovered/Not Resolved]
  - Hepatic enzyme increased [Not Recovered/Not Resolved]

NARRATIVE: CASE EVENT DATE: 20190322
